FAERS Safety Report 8945973 (Version 2)
Quarter: 2013Q1

REPORT INFORMATION
  Report Type: Spontaneous
  Country: US (occurrence: US)
  Receive Date: 20121204
  Receipt Date: 20130102
  Transmission Date: 20140127
  Serious: No
  Sender: FDA-Public Use
  Company Number: US-AMGEN-USASP2012073250

PATIENT
  Age: 81 Year
  Sex: Female

DRUGS (6)
  1. ENBREL [Suspect]
     Indication: ARTHRITIS
     Dosage: 50 MG, QWK
     Dates: start: 2010
  2. NUCYNTA [Concomitant]
     Indication: PAIN
     Dosage: 50 MG, EVERY FOUR HOURS
  3. ATORVASTATIN [Concomitant]
     Indication: DYSLIPIDAEMIA
     Dosage: 10 MG, QD
  4. CITALOPRAM [Concomitant]
     Indication: DEPRESSION
     Dosage: 40 MG, QD
  5. ARICEPT [Concomitant]
     Indication: DEMENTIA
     Dosage: 23 MG, QD
  6. LOSARTAN [Concomitant]
     Indication: HYPERTENSION
     Dosage: 50 MG, QD

REACTIONS (1)
  - Drug ineffective [Unknown]
